FAERS Safety Report 22180607 (Version 1)
Quarter: 2023Q2

REPORT INFORMATION
  Report Type: Spontaneous
  Country: AT (occurrence: AT)
  Receive Date: 20230406
  Receipt Date: 20230406
  Transmission Date: 20230721
  Serious: Yes (Other)
  Sender: FDA-Public Use
  Company Number: AT-SUN PHARMACEUTICAL INDUSTRIES LTD-2023R1-384242

PATIENT
  Age: 59 Year
  Sex: Male

DRUGS (2)
  1. TRIAMCINOLONE [Suspect]
     Active Substance: TRIAMCINOLONE
     Indication: Uveitis
     Dosage: 40 MILLIGRAM
     Route: 057
  2. DEXAMETHASONE [Suspect]
     Active Substance: DEXAMETHASONE
     Indication: Uveitis
     Dosage: 4 MILLIGRAM
     Route: 057

REACTIONS (2)
  - Macular oedema [Unknown]
  - Visual acuity reduced [Unknown]
